FAERS Safety Report 22089377 (Version 1)
Quarter: 2023Q1

REPORT INFORMATION
  Report Type: Spontaneous
  Country: US (occurrence: None)
  Receive Date: 20230311
  Receipt Date: 20230311
  Transmission Date: 20230417
  Serious: Yes (Other)
  Sender: FDA-Public Use
  Company Number: None

PATIENT
  Age: 38 Year
  Sex: Female
  Weight: 85.5 kg

DRUGS (1)
  1. DIHYDROERGOTAMINE MESYLATE [Suspect]
     Active Substance: DIHYDROERGOTAMINE MESYLATE
     Indication: Migraine
     Dosage: FREQUENCY : AS NEEDED;?
     Route: 041
     Dates: start: 20230311, end: 20230311

REACTIONS (3)
  - Infusion related reaction [None]
  - Nausea [None]
  - Refusal of treatment by patient [None]

NARRATIVE: CASE EVENT DATE: 20230311
